FAERS Safety Report 17969639 (Version 1)
Quarter: 2020Q3

REPORT INFORMATION
  Report Type: Spontaneous
  Country: CN (occurrence: CN)
  Receive Date: 20200701
  Receipt Date: 20200701
  Transmission Date: 20201103
  Serious: Yes (Other)
  Sender: FDA-Public Use
  Company Number: CN-GE HEALTHCARE LIFE SCIENCES-2020CSU002794

PATIENT

DRUGS (2)
  1. OMNISCAN [Suspect]
     Active Substance: GADODIAMIDE
     Indication: PRODUCT USED FOR UNKNOWN INDICATION
  2. OMNISCAN [Suspect]
     Active Substance: GADODIAMIDE
     Indication: MAGNETIC RESONANCE IMAGING HEART
     Dosage: 0.2 ML/KG, TOTAL APPROXIMATELY 20?35 ML VIA MACHINE (IV BOLUS), SINGLE
     Route: 042
     Dates: start: 20200623, end: 20200623

REACTIONS (4)
  - Sensation of foreign body [Unknown]
  - Erythema [Unknown]
  - Eyelid oedema [Unknown]
  - Lip oedema [Unknown]

NARRATIVE: CASE EVENT DATE: 20200623
